FAERS Safety Report 4782935-3 (Version None)
Quarter: 2005Q3

REPORT INFORMATION
  Report Type: 
  Country: None (occurrence: None)
  Receive Date: 20050928
  Receipt Date: 20050928
  Transmission Date: 20060218
  Serious: Yes (Life-Threatening, Hospitalization)
  Sender: FDA-Public Use
  Company Number: None

PATIENT
  Age: 81 Year
  Sex: Male
  Weight: 65 kg

DRUGS (6)
  1. AMIODARONE [Suspect]
     Indication: ATRIAL FIBRILLATION
     Dosage: 200 MG PO QD
     Route: 048
  2. GLIPIZIIDE [Concomitant]
  3. COLCHICINE [Concomitant]
  4. LASIX [Concomitant]
  5. ZAROXOLYN [Concomitant]
  6. ZOCOR [Concomitant]

REACTIONS (4)
  - BRADYCARDIA [None]
  - DIZZINESS [None]
  - DYSPNOEA [None]
  - RENAL IMPAIRMENT [None]
